FAERS Safety Report 6144496-6 (Version None)
Quarter: 2009Q2

REPORT INFORMATION
  Report Type: 
  Country: None (occurrence: None)
  Receive Date: 20090406
  Receipt Date: 20090323
  Transmission Date: 20091009
  Serious: Yes (Other)
  Sender: FDA-Public Use
  Company Number: US-ROCHE-623399

PATIENT
  Age: 52 Year
  Sex: Male

DRUGS (4)
  1. PEG-INTERFERON A-2A (RO 25-8310) [Suspect]
     Indication: HEPATITIS C
     Route: 065
     Dates: start: 20060101, end: 20070401
  2. PEG-INTERFERON A-2A (RO 25-8310) [Suspect]
     Route: 065
     Dates: start: 20081122
  3. RIBAVIRIN [Suspect]
     Indication: HEPATITIS C
     Route: 048
     Dates: start: 20060101, end: 20070401
  4. RIBAVIRIN [Suspect]
     Route: 048
     Dates: start: 20081122

REACTIONS (5)
  - ANAEMIA [None]
  - ASTHENIA [None]
  - DISEASE RECURRENCE [None]
  - FATIGUE [None]
  - HEPATIC CIRRHOSIS [None]
